FAERS Safety Report 15267947 (Version 1)
Quarter: 2018Q3

REPORT INFORMATION
  Report Type: Spontaneous
  Country: US (occurrence: US)
  Receive Date: 20180725
  Receipt Date: 20180725
  Transmission Date: 20181010
  Serious: Yes (Other)
  Sender: FDA-Public Use
  Company Number: None

PATIENT
  Age: 32 Year
  Sex: Female
  Weight: 103.5 kg

DRUGS (4)
  1. ZOLOFT [Concomitant]
     Active Substance: SERTRALINE HYDROCHLORIDE
  2. IBP [Concomitant]
     Active Substance: IBUPROFEN
  3. BOTOX [Suspect]
     Active Substance: ONABOTULINUMTOXINA
     Indication: MIGRAINE
     Dosage: ?          OTHER STRENGTH:NOT SURE;QUANTITY:30 INJECTION(S);OTHER FREQUENCY:EVERY 90 DAYS FOR;?
     Route: 058
     Dates: start: 20171119, end: 20180725
  4. ANESTHESIA [Suspect]
     Active Substance: UNSPECIFIED INGREDIENT
     Indication: SURGERY

REACTIONS (2)
  - Pain [None]
  - Loss of control of legs [None]

NARRATIVE: CASE EVENT DATE: 20180719
